FAERS Safety Report 5512317-8 (Version None)
Quarter: 2007Q4

REPORT INFORMATION
  Report Type: 
  Country: None (occurrence: None)
  Receive Date: 20071112
  Receipt Date: 20071022
  Transmission Date: 20080405
  Serious: No
  Sender: FDA-Public Use
  Company Number: A0688956A

PATIENT

DRUGS (1)
  1. VERAMYST [Suspect]
     Route: 045

REACTIONS (3)
  - ERYTHEMA [None]
  - EYE IRRITATION [None]
  - RASH [None]
